FAERS Safety Report 14540104 (Version 1)
Quarter: 2018Q1

REPORT INFORMATION
  Report Type: Spontaneous
  Country: NL (occurrence: NL)
  Receive Date: 20180216
  Receipt Date: 20180216
  Transmission Date: 20180509
  Serious: Yes (Hospitalization, Other)
  Sender: FDA-Public Use
  Company Number: NL-NOVOPROD-584881

PATIENT
  Age: 55 Year
  Sex: Female

DRUGS (2)
  1. NOVOMIX 30 FLEXPEN [Suspect]
     Active Substance: INSULIN ASPART
     Dosage: 30 IU, BID
     Route: 058
  2. NOVOMIX 30 FLEXPEN [Suspect]
     Active Substance: INSULIN ASPART
     Indication: PRODUCT USED FOR UNKNOWN INDICATION
     Dosage: 36 IU - 46 IU
     Route: 058
     Dates: start: 2009

REACTIONS (5)
  - Palpitations [Unknown]
  - Feeling abnormal [Unknown]
  - Dizziness [Unknown]
  - Blood glucose fluctuation [Unknown]
  - Nausea [Unknown]
